FAERS Safety Report 7812848-1 (Version None)
Quarter: 2011Q4

REPORT INFORMATION
  Report Type: 
  Country: None (occurrence: None)
  Receive Date: 20111011
  Receipt Date: 20111005
  Transmission Date: 20120403
  Serious: Yes (Other)
  Sender: FDA-Public Use
  Company Number: 2011SP042016

PATIENT
  Age: 32 Year
  Sex: Male

DRUGS (10)
  1. SULPIRIDE [Concomitant]
  2. SUCRALFATE [Concomitant]
  3. TETRAMIDE [Concomitant]
  4. MIRTAZAPINE [Suspect]
     Indication: DEPRESSION
     Dosage: 15 MG;QD;PO, 30 MG;QD;PO, 15 MG;QD;PO
     Route: 048
     Dates: start: 20110308, end: 20110321
  5. MIRTAZAPINE [Suspect]
     Indication: DEPRESSION
     Dosage: 15 MG;QD;PO, 30 MG;QD;PO, 15 MG;QD;PO
     Route: 048
     Dates: start: 20110222, end: 20110307
  6. MIRTAZAPINE [Suspect]
     Indication: DEPRESSION
     Dosage: 15 MG;QD;PO, 30 MG;QD;PO, 15 MG;QD;PO
     Route: 048
     Dates: start: 20110322, end: 20110530
  7. ALPRAZOLAM [Concomitant]
  8. AMOXAPINE [Concomitant]
  9. ETIZOLAM [Concomitant]
  10. FOSFOMYCIN CALCIUM [Concomitant]

REACTIONS (6)
  - URACHAL ABSCESS [None]
  - ENTERITIS INFECTIOUS [None]
  - HEPATIC STEATOSIS [None]
  - LIVER DISORDER [None]
  - HEPATIC FUNCTION ABNORMAL [None]
  - WHITE BLOOD CELL COUNT INCREASED [None]
